FAERS Safety Report 7346762-5 (Version None)
Quarter: 2011Q1

REPORT INFORMATION
  Report Type: 
  Country: None (occurrence: None)
  Receive Date: 20110302
  Receipt Date: 20081124
  Transmission Date: 20110831
  Serious: Yes (Death, Life-Threatening, Hospitalization)
  Sender: FDA-Public Use
  Company Number: UK-2008-00462

PATIENT
  Age: 81 Year
  Sex: Female

DRUGS (5)
  1. FUSIDIC ACID [Suspect]
     Indication: STAPHYLOCOCCAL INFECTION
     Dosage: 500 MG (500 MG), ORAL
     Route: 048
     Dates: start: 20081001
  2. BUMETANIDE [Concomitant]
  3. RAMIPRIL [Concomitant]
  4. SIMVASTATIN [Suspect]
     Indication: CARDIOVASCULAR EVENT PROPHYLAXIS
     Dosage: ORAL
     Route: 048
  5. TRIMETHOPRAM (UNKNOWN) [Suspect]
     Indication: STAPHYLOCOCCAL INFECTION
     Dosage: 400 MG (200 MG, 2 IN 1 D), ORAL
     Route: 048
     Dates: start: 20081001

REACTIONS (4)
  - RHABDOMYOLYSIS [None]
  - MUSCULAR WEAKNESS [None]
  - URINARY TRACT INFECTION [None]
  - STAPHYLOCOCCAL INFECTION [None]
